FAERS Safety Report 18021523 (Version 2)
Quarter: 2020Q3

REPORT INFORMATION
  Report Type: Report from Study
  Country: None (occurrence: US)
  Receive Date: 20200714
  Receipt Date: 20200820
  Transmission Date: 20201103
  Serious: Yes (Hospitalization)
  Sender: FDA-Public Use
  Company Number: US-ABBVIE-20P-163-3466497-00

PATIENT
  Age: 24 Year
  Sex: Male

DRUGS (8)
  1. VENETOCLAX. [Suspect]
     Active Substance: VENETOCLAX
     Dosage: C1D2
     Route: 048
     Dates: start: 20200617, end: 20200617
  2. NEULASTA [Concomitant]
     Active Substance: PEGFILGRASTIM
     Indication: ACUTE MYELOID LEUKAEMIA
     Dosage: AFTER DAY 5, REPLACEMENT TO FILGRASTIM INJECTIONS
     Route: 058
  3. FLUDARABINE [Concomitant]
     Active Substance: FLUDARABINE PHOSPHATE
     Indication: ACUTE MYELOID LEUKAEMIA
     Dosage: DAYS 2, 3, 4, 5, 6
     Route: 042
  4. VENETOCLAX. [Suspect]
     Active Substance: VENETOCLAX
     Indication: ACUTE MYELOID LEUKAEMIA
     Dosage: C1D1
     Route: 048
     Dates: start: 20200616, end: 20200616
  5. VENETOCLAX. [Suspect]
     Active Substance: VENETOCLAX
     Dosage: C1D3?D14
     Route: 048
     Dates: start: 20200618
  6. CYTARABINE HYDROCHLORIDE [Concomitant]
     Active Substance: CYTARABINE HYDROCHLORIDE
     Indication: ACUTE MYELOID LEUKAEMIA
     Dosage: 1.5 G/M2; DAYS 2, 3, 4, 5, 6;
     Route: 042
  7. IDARUBICIN [Concomitant]
     Active Substance: IDARUBICIN
     Indication: ACUTE MYELOID LEUKAEMIA
     Dosage: DAYS 4 AND 5
     Route: 042
  8. FILGRASTIM (GCSF) [Concomitant]
     Indication: ACUTE MYELOID LEUKAEMIA
     Dosage: DAYS 1, 2, 3, 4, 5, 6, 7

REACTIONS (1)
  - Streptococcal bacteraemia [Recovered/Resolved]

NARRATIVE: CASE EVENT DATE: 20200629
